FAERS Safety Report 7069016-3 (Version None)
Quarter: 2010Q4

REPORT INFORMATION
  Report Type: 
  Country: None (occurrence: None)
  Receive Date: 20101028
  Receipt Date: 20101025
  Transmission Date: 20110411
  Serious: Yes (Other)
  Sender: FDA-Public Use
  Company Number: US-BAYER-201037659NA

PATIENT
  Age: 63 Year
  Sex: Male
  Weight: 73 kg

DRUGS (2)
  1. LEVITRA [Suspect]
     Indication: ERECTILE DYSFUNCTION
     Route: 048
     Dates: start: 20070101
  2. VIAGRA [Interacting]
     Indication: ERECTILE DYSFUNCTION
     Route: 048
     Dates: start: 19990719

REACTIONS (3)
  - DRUG INEFFECTIVE [None]
  - GASTRIC DISORDER [None]
  - HYPERTENSION [None]
